FAERS Safety Report 23495095 (Version 1)
Quarter: 2024Q1

REPORT INFORMATION
  Report Type: Spontaneous
  Country: US (occurrence: None)
  Receive Date: 20240206
  Receipt Date: 20240206
  Transmission Date: 20240409
  Serious: Yes (Other)
  Sender: FDA-Public Use
  Company Number: None

PATIENT
  Age: 76 Year
  Sex: Female

DRUGS (1)
  1. MAXITROL [Suspect]
     Active Substance: DEXAMETHASONE\NEOMYCIN SULFATE\POLYMYXIN B SULFATE
     Indication: Pyogenic granuloma
     Dosage: 1 GTT DROP(S)  4 TIMES A DAY OPHTHALMIC?
     Route: 047
     Dates: start: 20240205, end: 20240205

REACTIONS (3)
  - Tinnitus [None]
  - Dizziness [None]
  - Sleep disorder [None]

NARRATIVE: CASE EVENT DATE: 20240205
